FAERS Safety Report 8404725-2 (Version None)
Quarter: 2012Q2

REPORT INFORMATION
  Report Type: 
  Country: None (occurrence: None)
  Receive Date: 20120601
  Receipt Date: 20111215
  Transmission Date: 20120825
  Serious: No
  Sender: FDA-Public Use
  Company Number: US-NOVEN-11US003807

PATIENT

DRUGS (2)
  1. DEPAKOTE [Concomitant]
     Indication: CONVULSION
     Route: 048
  2. DAYTRANA [Suspect]
     Indication: PRODUCT USED FOR UNKNOWN INDICATION
     Dosage: DAILY
     Route: 062
     Dates: start: 20111213

REACTIONS (3)
  - DRUG ADMINISTERED AT INAPPROPRIATE SITE [None]
  - DRUG PRESCRIBING ERROR [None]
  - APPLICATION SITE PAIN [None]
